FAERS Safety Report 8918878 (Version 1)
Quarter: 2012Q4

REPORT INFORMATION
  Report Type: Spontaneous
  Country: US (occurrence: None)
  Receive Date: 20121115
  Receipt Date: 20121115
  Transmission Date: 20130627
  Serious: Yes (Hospitalization)
  Sender: FDA-Public Use
  Company Number: None

PATIENT
  Sex: Male
  Weight: 97.3 kg

DRUGS (2)
  1. METHOTREXATE [Suspect]
     Indication: UROTHELIAL CARCINOMA
     Route: 042
     Dates: start: 20121108
  2. VINBLASTINE [Suspect]
     Route: 042
     Dates: start: 20121108

REACTIONS (2)
  - Nausea [None]
  - Vomiting [None]
